FAERS Safety Report 5920564-6 (Version None)
Quarter: 2008Q4

REPORT INFORMATION
  Report Type: 
  Country: None (occurrence: None)
  Receive Date: 20081015
  Receipt Date: 20081015
  Transmission Date: 20090506
  Serious: Yes (Hospitalization)
  Sender: FDA-Public Use
  Company Number: None

PATIENT
  Sex: Female
  Weight: 75 kg

DRUGS (4)
  1. TEMOZOLOMIDE [Suspect]
     Dosage: 1620 MG
  2. GABAPENTIN [Concomitant]
  3. OMEPRAZOLE [Concomitant]
  4. TEGRETOL [Concomitant]

REACTIONS (4)
  - BRAIN SCAN ABNORMAL [None]
  - FEBRILE NEUTROPENIA [None]
  - HAEMORRHAGE [None]
  - SHUNT INFECTION [None]
